FAERS Safety Report 7536182 (Version 4)
Quarter: 2015Q4

REPORT INFORMATION
  Report Type: Spontaneous
  Country: US (occurrence: US)
  Receive Date: 20100811
  Receipt Date: 20151229
  Transmission Date: 20160305
  Serious: No
  Sender: FDA-Public Use
  Company Number: US-BAYER-201029870NA

PATIENT
  Age: 33 Year
  Sex: Female
  Weight: 68.93 kg

DRUGS (2)
  1. MIRENA [Suspect]
     Active Substance: LEVONORGESTREL
     Indication: CONTRACEPTION
     Dosage: FREQUENCY CONTINUOUS
     Route: 015
     Dates: start: 200903
  2. VITAMIN B12 [Suspect]
     Active Substance: CYANOCOBALAMIN
     Dosage: DAILY DOSE 500 MG
     Dates: start: 20100818

REACTIONS (8)
  - Paraesthesia [Not Recovered/Not Resolved]
  - Intervertebral disc protrusion [None]
  - Procedural pain [Unknown]
  - Dizziness [Unknown]
  - Dyspnoea [Unknown]
  - Hypoaesthesia [Unknown]
  - Blood pressure decreased [Unknown]
  - Fall [None]

NARRATIVE: CASE EVENT DATE: 200903
